FAERS Safety Report 9133570 (Version 6)
Quarter: 2014Q2

REPORT INFORMATION
  Report Type: Spontaneous
  Country: JP (occurrence: JP)
  Receive Date: 20130116
  Receipt Date: 20140410
  Transmission Date: 20141212
  Serious: Yes (Hospitalization, Disabling, Other)
  Sender: FDA-Public Use
  Company Number: JP-009507513-1301JPN005871

PATIENT
  Age: 62 Year
  Sex: Male
  Weight: 48 kg

DRUGS (13)
  1. PEGINTRON [Suspect]
     Indication: CHRONIC HEPATITIS C
     Dosage: 80 MICROGRAM, QW
     Route: 058
     Dates: start: 20121016, end: 20121205
  2. REBETOL [Suspect]
     Indication: CHRONIC HEPATITIS C
     Dosage: 200 MG, TID
     Route: 048
     Dates: start: 20121016, end: 20121128
  3. TELAVIC [Suspect]
     Indication: CHRONIC HEPATITIS C
     Dosage: 2250 MG, QD
     Route: 048
     Dates: start: 20121016, end: 20121128
  4. URSO [Concomitant]
     Indication: CHRONIC HEPATITIS C
     Dosage: 600 MG, QD
     Route: 048
  5. AMARYL [Concomitant]
     Dosage: 1 MG, QD
     Route: 048
  6. ENSURE H [Concomitant]
     Dosage: 250 ML, QD
     Route: 048
     Dates: start: 20121107, end: 20121204
  7. PROMAC (POLAPREZINC) [Concomitant]
     Dosage: 75 MG, BID
     Route: 048
     Dates: start: 20121205, end: 20121212
  8. ALLELOCK [Concomitant]
     Dosage: DAILY DOSAGE UNKNOWN
     Route: 048
  9. POLARAMINE (DEXCHLORPHENIRAMINE MALEATE) [Concomitant]
     Dosage: DAILY DOSAGE UNKNOWN
     Route: 065
  10. NAUZELIN [Concomitant]
     Dosage: DAILY DOSAGE UNKNOWN
     Route: 065
  11. DEPAS [Concomitant]
     Dosage: DAILY DOSAGE UNKNOWN
     Route: 048
  12. LORFENAMIN [Concomitant]
     Dosage: DAILY DOSAGE UNKNOWN
     Route: 048
  13. ANTEBATE [Concomitant]
     Dosage: DAILY DOSAGE UNKNOWN
     Route: 003

REACTIONS (3)
  - Movement disorder [Not Recovered/Not Resolved]
  - Blood creatine phosphokinase increased [Recovered/Resolved]
  - Rhabdomyolysis [Recovering/Resolving]
